FAERS Safety Report 16302305 (Version 1)
Quarter: 2019Q2

REPORT INFORMATION
  Report Type: Report from Study
  Country: None (occurrence: US)
  Receive Date: 20190512
  Receipt Date: 20190512
  Transmission Date: 20190711
  Serious: Yes (Other)
  Sender: FDA-Public Use
  Company Number: US-ABBVIE-19K-163-2778143-00

PATIENT
  Age: 70 Year
  Sex: Female

DRUGS (2)
  1. HUMIRA [Suspect]
     Active Substance: ADALIMUMAB
     Indication: PSORIASIS
     Route: 058
  2. MAGNESIUM [Suspect]
     Active Substance: MAGNESIUM
     Indication: CONSTIPATION
     Route: 065

REACTIONS (4)
  - Constipation [Unknown]
  - Diarrhoea [Recovering/Resolving]
  - Heart rate increased [Recovered/Resolved]
  - Vaginal cyst [Recovering/Resolving]

NARRATIVE: CASE EVENT DATE: 2019
